FAERS Safety Report 21122375 (Version 2)
Quarter: 2022Q3

REPORT INFORMATION
  Report Type: Spontaneous
  Country: US (occurrence: US)
  Receive Date: 20220723
  Receipt Date: 20220804
  Transmission Date: 20221026
  Serious: Yes (Life-Threatening, Hospitalization, Other)
  Sender: FDA-Public Use
  Company Number: US-drreddys-LIT/USA/22/0152498

PATIENT
  Age: 14 Year
  Sex: Male

DRUGS (16)
  1. FLUOXETINE [Suspect]
     Active Substance: FLUOXETINE HYDROCHLORIDE
     Indication: Depression
  2. FLUOXETINE [Suspect]
     Active Substance: FLUOXETINE HYDROCHLORIDE
     Indication: Anxiety
  3. DIPHENHYDRAMINE [Suspect]
     Active Substance: DIPHENHYDRAMINE
     Indication: Agitation
  4. DIPHENHYDRAMINE [Suspect]
     Active Substance: DIPHENHYDRAMINE
     Indication: Seizure
  5. LORAZEPAM [Suspect]
     Active Substance: LORAZEPAM
     Indication: Agitation
  6. LORAZEPAM [Suspect]
     Active Substance: LORAZEPAM
     Indication: Seizure
  7. BUPROPION [Suspect]
     Active Substance: BUPROPION
     Indication: Depression
     Route: 048
  8. BUPROPION [Suspect]
     Active Substance: BUPROPION
     Indication: Anxiety
  9. HALOPERIDOL [Suspect]
     Active Substance: HALOPERIDOL
     Indication: Agitation
  10. HALOPERIDOL [Suspect]
     Active Substance: HALOPERIDOL
     Indication: Seizure
  11. MIDAZOLAM [Suspect]
     Active Substance: MIDAZOLAM
     Indication: Agitation
     Route: 042
  12. CYPROHEPTADINE [Suspect]
     Active Substance: CYPROHEPTADINE
     Indication: Product used for unknown indication
  13. CLONIDINE [Concomitant]
     Active Substance: CLONIDINE
     Indication: Depression
  14. CLONIDINE [Concomitant]
     Active Substance: CLONIDINE
     Indication: Anxiety
  15. ESCITALOPRAM [Concomitant]
     Active Substance: ESCITALOPRAM OXALATE
     Indication: Anxiety
  16. ESCITALOPRAM [Concomitant]
     Active Substance: ESCITALOPRAM OXALATE
     Indication: Depression

REACTIONS (16)
  - Condition aggravated [Recovered/Resolved]
  - Respiratory failure [Recovered/Resolved]
  - Hypertension [Recovered/Resolved]
  - Tachycardia [Recovered/Resolved]
  - Drug ineffective [Unknown]
  - Gastric hypomotility [Recovered/Resolved]
  - Drug clearance decreased [Recovered/Resolved]
  - Bezoar [Recovered/Resolved]
  - Hyperreflexia [Recovered/Resolved]
  - Toxicity to various agents [Recovered/Resolved]
  - Clonus [Recovered/Resolved]
  - Muscle rigidity [Recovered/Resolved]
  - Hyperthermia [Recovered/Resolved]
  - Generalised tonic-clonic seizure [Recovered/Resolved]
  - Aggression [Recovered/Resolved]
  - Mental status changes [Recovered/Resolved]
